FAERS Safety Report 21676238 (Version 1)
Quarter: 2022Q4

REPORT INFORMATION
  Report Type: Report from Study
  Country: CA (occurrence: CA)
  Receive Date: 20221202
  Receipt Date: 20221202
  Transmission Date: 20230113
  Serious: Yes (Other)
  Sender: FDA-Public Use
  Company Number: CA-MYLANLABS-2022M1096347

PATIENT
  Age: 43 Year
  Sex: Male

DRUGS (1)
  1. HULIO [Suspect]
     Active Substance: ADALIMUMAB-FKJP
     Indication: Ankylosing spondylitis
     Dosage: UNK UNK, BIWEEKLY
     Route: 058
     Dates: start: 20220530

REACTIONS (3)
  - Ankylosing spondylitis [Unknown]
  - Chest discomfort [Unknown]
  - Injection site pain [Unknown]
